FAERS Safety Report 9106047 (Version 1)
Quarter: 2013Q1

REPORT INFORMATION
  Report Type: Spontaneous
  Country: GB (occurrence: GB)
  Receive Date: 20130220
  Receipt Date: 20130220
  Transmission Date: 20140127
  Serious: Yes (Other)
  Sender: FDA-Public Use
  Company Number: GB-PFIZER INC-2013059827

PATIENT
  Age: 57 Year
  Sex: Female
  Weight: 62.1 kg

DRUGS (14)
  1. ONDANSETRON HCL [Suspect]
     Indication: ANTIEMETIC SUPPORTIVE CARE
     Dosage: 4MG, UNK
     Route: 042
     Dates: start: 20121101, end: 20121101
  2. FLUOXETINE [Suspect]
     Indication: DEPRESSION
     Dosage: 20MG, UNK
     Route: 048
  3. ATORVASTATIN [Concomitant]
     Route: 048
  4. RANITIDINE [Concomitant]
     Route: 048
  5. SEVOFLURANE [Concomitant]
     Indication: GENERAL ANAESTHESIA
  6. FENTANYL [Concomitant]
  7. PROPOFOL [Concomitant]
  8. ATRACURIUM [Concomitant]
  9. DEXAMETHASONE [Concomitant]
  10. METRONIDAZOLE [Concomitant]
  11. GENTAMICIN [Concomitant]
  12. EPHEDRINE [Concomitant]
     Indication: INTRAOPERATIVE CARE
  13. NEOSTIGMINE [Concomitant]
     Indication: INTRAOPERATIVE CARE
  14. MANEVAC [Concomitant]

REACTIONS (6)
  - Serotonin syndrome [Recovered/Resolved]
  - Procedural hypertension [Recovered/Resolved]
  - Tachycardia [Recovered/Resolved]
  - Pyrexia [Recovered/Resolved]
  - Tremor [Recovered/Resolved]
  - Coma scale abnormal [Recovered/Resolved]
